FAERS Safety Report 18218153 (Version 2)
Quarter: 2020Q3

REPORT INFORMATION
  Report Type: Spontaneous
  Country: US (occurrence: US)
  Receive Date: 20200901
  Receipt Date: 20200915
  Transmission Date: 20201103
  Serious: Yes (Other)
  Sender: FDA-Public Use
  Company Number: US-EYEVANCE PHARMACEUTICALS-2020EYE00180

PATIENT
  Age: 66 Year
  Sex: Female
  Weight: 107.48 kg

DRUGS (16)
  1. ISOSORBIDE ER [Concomitant]
     Active Substance: ISOSORBIDE
  2. BASAGLAR [Concomitant]
     Active Substance: INSULIN GLARGINE
  3. UNSPECIFIED INSULIN [Concomitant]
     Active Substance: INSULIN NOS
  4. UNSPECIFIED HEART STENT MEDICATION [Concomitant]
  5. UNSPECIFIED DIABETES MEDICATION [Concomitant]
  6. FRESHKOTE [Suspect]
     Active Substance: POLYVINYL ALCOHOL\POVIDONE
     Indication: DRY EYE
     Dosage: 1 DROP, EVERY 4 HOURS (OR 4 TIMES DAILY) IN BOTH EYES
     Route: 047
     Dates: start: 20200816, end: 20200817
  7. GLIPIZIDE ER [Concomitant]
     Active Substance: GLIPIZIDE
  8. METOPROLOL ER [Concomitant]
     Active Substance: METOPROLOL SUCCINATE
  9. METRONIDAZOLE. [Concomitant]
     Active Substance: METRONIDAZOLE
     Route: 061
  10. LISINOPRIL. [Concomitant]
     Active Substance: LISINOPRIL
  11. METFORMIN [Concomitant]
     Active Substance: METFORMIN HYDROCHLORIDE
  12. FRESHKOTE [Suspect]
     Active Substance: POLYVINYL ALCOHOL\POVIDONE
     Indication: CORNEAL DYSTROPHY
     Dosage: UNK
  13. SIMVASTATIN. [Concomitant]
     Active Substance: SIMVASTATIN
  14. ZETIA [Concomitant]
     Active Substance: EZETIMIBE
  15. HCTZ [Concomitant]
     Active Substance: HYDROCHLOROTHIAZIDE
  16. ^TARCEGA^ (PRESUMED FARXIGA) [Concomitant]

REACTIONS (8)
  - Eye pain [Recovered/Resolved]
  - Eye discharge [Recovered/Resolved]
  - Eye infection [Recovered/Resolved]
  - Vision blurred [Recovered/Resolved]
  - Photophobia [Recovered/Resolved]
  - Ocular hyperaemia [Recovered/Resolved]
  - Product contamination [Recovered/Resolved]
  - Eye swelling [Recovered/Resolved]

NARRATIVE: CASE EVENT DATE: 202008
